FAERS Safety Report 8477249-4 (Version None)
Quarter: 2012Q2

REPORT INFORMATION
  Report Type: 
  Country: None (occurrence: None)
  Receive Date: 20120622
  Receipt Date: 20120608
  Transmission Date: 20120825
  Serious: Yes (Hospitalization)
  Sender: FDA-Public Use
  Company Number: JPI-P-021950

PATIENT
  Age: 31 Year
  Sex: Female

DRUGS (2)
  1. XYREM [Suspect]
     Indication: CATAPLEXY
     Dosage: 2.25;4.5 GM (2.25 GM, 1 IN 1 D), ORAL
     Route: 048
     Dates: start: 20111228
  2. XYREM [Suspect]
     Indication: CATAPLEXY
     Dosage: 2.25;4.5 GM (2.25 GM, 1 IN 1 D), ORAL
     Route: 048
     Dates: start: 20111220, end: 20111227

REACTIONS (1)
  - PULMONARY EMBOLISM [None]
